FAERS Safety Report 9323841 (Version 4)
Quarter: 2013Q4

REPORT INFORMATION
  Report Type: Report from Study
  Country: US (occurrence: US)
  Receive Date: 20130603
  Receipt Date: 20131029
  Transmission Date: 20140711
  Serious: Yes (Hospitalization, Other)
  Sender: FDA-Public Use
  Company Number: US-CELGENEUS-163-21880-13053625

PATIENT
  Age: 69 Year
  Sex: Male
  Weight: 67.7 kg

DRUGS (31)
  1. REVLIMID [Suspect]
     Indication: ACUTE MYELOID LEUKAEMIA
     Dosage: 50 MILLIGRAM
     Route: 048
     Dates: start: 20130501, end: 20130522
  2. REVLIMID [Suspect]
     Dosage: 50 MILLIGRAM
     Route: 048
     Dates: end: 20130528
  3. VIDAZA [Suspect]
     Indication: ACUTE MYELOID LEUKAEMIA
     Dosage: 134 MILLIGRAM
     Route: 058
     Dates: start: 20130424, end: 20130430
  4. PACKED RED BLOOD CELLS [Concomitant]
     Indication: TRANSFUSION
     Route: 065
  5. PLATELETS [Concomitant]
     Indication: TRANSFUSION
     Route: 065
  6. ACYCLOVIR [Concomitant]
     Indication: ANTIVIRAL PROPHYLAXIS
     Dosage: 600 MILLIGRAM
     Route: 048
     Dates: start: 20130424
  7. ZOFRAN [Concomitant]
     Indication: PREMEDICATION
     Dosage: 8 MILLIGRAM
     Route: 048
     Dates: start: 20130424
  8. BENADRYL [Concomitant]
     Indication: PREMEDICATION
     Dosage: 50 MILLIGRAM
     Route: 048
     Dates: start: 20130424
  9. TYLENOL [Concomitant]
     Indication: TRANSFUSION REACTION
     Route: 048
     Dates: start: 20130424
  10. AMICAR [Concomitant]
     Indication: PROPHYLAXIS
     Route: 048
     Dates: start: 20130513, end: 20130513
  11. AMICAR [Concomitant]
     Route: 048
     Dates: start: 20130513, end: 20130516
  12. POTASSIUM CHLORIDE [Concomitant]
     Indication: ELECTROLYTE SUBSTITUTION THERAPY
     Route: 041
     Dates: start: 20130516, end: 20130526
  13. POTASSIUM CHLORIDE [Concomitant]
     Route: 048
     Dates: start: 20130516, end: 20130531
  14. REMERON [Concomitant]
     Indication: DEPRESSION
     Dosage: 15 MILLIGRAM
     Route: 048
     Dates: start: 20130516, end: 20130523
  15. REMERON [Concomitant]
     Dosage: 30 MILLIGRAM
     Route: 048
     Dates: start: 20130523, end: 20130526
  16. REMERON [Concomitant]
     Dosage: 15 MILLIGRAM
     Route: 048
     Dates: start: 20130526, end: 20130531
  17. MAGNESIUM SULFATE [Concomitant]
     Indication: ELECTROLYTE SUBSTITUTION THERAPY
     Route: 041
     Dates: start: 20130516, end: 20130531
  18. HEPARIN [Concomitant]
     Indication: PROPHYLAXIS
     Dosage: 300 UNITS
     Route: 041
     Dates: start: 20130516
  19. LEVAQUIN [Concomitant]
     Indication: PRODUCT USED FOR UNKNOWN INDICATION
     Dosage: 1000 MILLIGRAM
     Route: 048
     Dates: start: 20130517
  20. CLOTRIMAZOLE [Concomitant]
     Indication: CANDIDA INFECTION
     Dosage: 50 MILLIGRAM
     Route: 048
     Dates: start: 20130517
  21. HYDROXYUREA [Concomitant]
     Indication: LEUKOCYTOSIS
     Dosage: 3000 MILLIGRAM
     Route: 048
     Dates: start: 20130522, end: 20130524
  22. HYDROXYUREA [Concomitant]
     Dosage: 4500 MILLIGRAM
     Route: 048
     Dates: start: 20130524, end: 20130530
  23. CHLORASEPTIC [Concomitant]
     Indication: PAIN
     Dosage: 1
     Route: 048
     Dates: start: 20130525, end: 20130526
  24. MAGNESIUM OXIDE [Concomitant]
     Indication: ELECTROLYTE SUBSTITUTION THERAPY
     Route: 048
     Dates: start: 20130526, end: 20130526
  25. AMOXICILLIN [Concomitant]
     Indication: URINARY TRACT INFECTION
     Dosage: 875-125MG
     Route: 048
     Dates: start: 20130526
  26. VANCOMYCIN [Concomitant]
     Indication: PNEUMONIA
     Route: 041
     Dates: start: 20130528, end: 20130531
  27. ZOSYN [Concomitant]
     Indication: PNEUMONIA
     Route: 041
     Dates: start: 20130528, end: 20130531
  28. ROBITUSSIN [Concomitant]
     Indication: COUGH
     Route: 048
     Dates: start: 20130529, end: 20130531
  29. TESSALON [Concomitant]
     Indication: COUGH
     Route: 048
     Dates: start: 20130529, end: 20130531
  30. I.V FLUIDS [Concomitant]
     Indication: PRODUCT USED FOR UNKNOWN INDICATION
     Route: 041
  31. AUGMENTIN [Concomitant]
     Indication: URINARY TRACT INFECTION
     Route: 065

REACTIONS (4)
  - Fatigue [Not Recovered/Not Resolved]
  - Hypoxia [Not Recovered/Not Resolved]
  - Hypoxia [Recovered/Resolved with Sequelae]
  - Pneumonia [Not Recovered/Not Resolved]
